FAERS Safety Report 9667815 (Version 1)
Quarter: 2013Q4

REPORT INFORMATION
  Report Type: Spontaneous
  Country: US (occurrence: US)
  Receive Date: 20131104
  Receipt Date: 20131104
  Transmission Date: 20140711
  Serious: Yes (Hospitalization)
  Sender: FDA-Public Use
  Company Number: US-B.I. PHARMACEUTICALS,INC./RIDGEFIELD-2013-BI-34803BP

PATIENT
  Sex: Female
  Weight: 86 kg

DRUGS (4)
  1. COMBIVENT [Suspect]
     Indication: EMPHYSEMA
     Dosage: 108 MCG
     Route: 055
     Dates: start: 2003, end: 201308
  2. BABY ASPIRIN [Concomitant]
     Dosage: 81 MG
     Route: 048
  3. ALBUTEROL [Concomitant]
     Indication: PROPHYLAXIS
  4. DILTIAZEM [Concomitant]
     Indication: HEART RATE IRREGULAR
     Dosage: 120 MG
     Route: 048

REACTIONS (6)
  - Pulmonary congestion [Recovered/Resolved]
  - Dyspnoea [Not Recovered/Not Resolved]
  - Asthenia [Recovered/Resolved]
  - Weight increased [Not Recovered/Not Resolved]
  - Drug prescribing error [Recovered/Resolved]
  - Overdose [Recovered/Resolved]
